FAERS Safety Report 7935723-0 (Version None)
Quarter: 2011Q4

REPORT INFORMATION
  Report Type: 
  Country: None (occurrence: None)
  Receive Date: 20111123
  Receipt Date: 20111024
  Transmission Date: 20120403
  Serious: Yes (Other)
  Sender: FDA-Public Use
  Company Number: CA-JNJFOC-20110809600

PATIENT
  Sex: Male
  Weight: 83 kg

DRUGS (14)
  1. REMICADE [Suspect]
     Dosage: 100MG/VIAL
     Route: 042
     Dates: start: 20110128
  2. REMICADE [Suspect]
     Dosage: 100MG/VIAL
     Route: 042
     Dates: start: 20100928
  3. COLCHICINE [Concomitant]
     Route: 048
  4. ADALAT [Concomitant]
     Route: 048
  5. REMICADE [Suspect]
     Dosage: 100MG/VIAL
     Route: 042
     Dates: start: 20110513
  6. ASPIRIN [Concomitant]
     Route: 048
  7. ATACAND [Concomitant]
     Route: 048
  8. METFORMIN HCL [Concomitant]
     Route: 048
  9. REMICADE [Suspect]
     Indication: PSORIASIS
     Dosage: 100MG/VIAL
     Route: 042
     Dates: start: 20100906
  10. REMICADE [Suspect]
     Dosage: 100MG/VIAL
     Route: 042
     Dates: start: 20101014
  11. REMICADE [Suspect]
     Dosage: 100MG/VIAL
     Route: 042
     Dates: start: 20110711
  12. REMICADE [Suspect]
     Dosage: 100MG/VIAL
     Route: 042
     Dates: start: 20101118
  13. CRESTOR [Concomitant]
     Route: 048
  14. REMICADE [Suspect]
     Dosage: 100MG/VIAL
     Route: 042
     Dates: start: 20110321

REACTIONS (1)
  - PROSTATE CANCER [None]
